FAERS Safety Report 15260997 (Version 1)
Quarter: 2018Q3

REPORT INFORMATION
  Report Type: Spontaneous
  Country: DE (occurrence: DE)
  Receive Date: 20180809
  Receipt Date: 20180809
  Transmission Date: 20181010
  Serious: Yes (Other)
  Sender: FDA-Public Use
  Company Number: PHHY2018DE058728

PATIENT
  Age: 72 Year
  Sex: Female

DRUGS (1)
  1. PACLITAXEL. [Suspect]
     Active Substance: PACLITAXEL
     Indication: PRODUCT USED FOR UNKNOWN INDICATION
     Dosage: ANGIOPLASTY OF THE DISTAL BYPASS ANASTOMOSIS AND POPLITEAL ARTERY USING 2 PACLITAXEL?ELUTING BALLOON
     Route: 065

REACTIONS (1)
  - Panniculitis [Recovered/Resolved]
